FAERS Safety Report 7209309-X (Version None)
Quarter: 2011Q1

REPORT INFORMATION
  Report Type: 
  Country: None (occurrence: None)
  Receive Date: 20110104
  Receipt Date: 20101221
  Transmission Date: 20110831
  Serious: Yes (Congenital Anomaly, Other)
  Sender: FDA-Public Use
  Company Number: PHHY2010GB86916

PATIENT
  Sex: Male

DRUGS (4)
  1. AZATHIOPRINE [Suspect]
     Dosage: 100MG, ONCE DAILY
     Route: 064
     Dates: start: 20040101
  2. MIRTAZAPINE [Concomitant]
     Dosage: 30 MG, ONCE DAILY
     Route: 064
     Dates: start: 20030101
  3. FOLIC ACID [Suspect]
     Dosage: 5MG, ONCE DAILY
     Route: 064
  4. VALPROATE SEMISODIUM [Concomitant]
     Dosage: 269MG, TID
     Route: 064
     Dates: start: 20050101

REACTIONS (4)
  - DRUG EXPOSURE DURING PREGNANCY [None]
  - CRYPTORCHISM [None]
  - HYPOTONIA [None]
  - XXYY SYNDROME [None]
